FAERS Safety Report 5655068-1 (Version None)
Quarter: 2008Q1

REPORT INFORMATION
  Report Type: 
  Country: None (occurrence: None)
  Receive Date: 20080307
  Receipt Date: 20071116
  Transmission Date: 20080703
  Serious: No
  Sender: FDA-Public Use
  Company Number: A0694511A

PATIENT
  Age: 55 Year
  Sex: Male

DRUGS (5)
  1. REQUIP [Suspect]
     Indication: PARKINSON'S DISEASE
     Dosage: 3MG THREE TIMES PER DAY
     Route: 048
     Dates: start: 20041001, end: 20071001
  2. CARBIDOPA AND LEVODOPA [Concomitant]
  3. SORIATANE [Concomitant]
  4. LEXAPRO [Concomitant]
  5. BUPROPION HCL [Concomitant]
     Route: 048

REACTIONS (2)
  - PATHOLOGICAL GAMBLING [None]
  - SOMNOLENCE [None]
